FAERS Safety Report 8855111 (Version 1)
Quarter: 2012Q4

REPORT INFORMATION
  Report Type: Report from Study
  Country: JP (occurrence: JP)
  Receive Date: 20121023
  Receipt Date: 20121023
  Transmission Date: 20130627
  Serious: Yes (Other)
  Sender: FDA-Public Use
  Company Number: JP-VERTEX PHARMACEUTICAL INC.-AE-2012-008974

PATIENT
  Age: 69 Year
  Sex: Male

DRUGS (13)
  1. VX-950 [Suspect]
     Indication: HEPATITIS C
     Dosage: 2250 mg, qd
     Route: 048
     Dates: start: 20120302, end: 20120323
  2. VX-950 [Suspect]
     Dosage: 1500 mg, qd
     Route: 048
     Dates: start: 20120324
  3. VX-950 [Suspect]
     Dosage: 750 mg, qd
     Dates: start: 20120420, end: 20120510
  4. VX-950 [Suspect]
     Dosage: 1500 mg, qd
     Route: 048
     Dates: start: 20120511, end: 20120601
  5. VX-950 [Suspect]
     Dosage: UNK
  6. REBETOL [Suspect]
     Indication: HEPATITIS C
     Dosage: 800 mg, qd
     Route: 048
     Dates: start: 20120302, end: 20120308
  7. REBETOL [Suspect]
     Dosage: 600 mg, qd
     Route: 048
     Dates: start: 20120309, end: 20120323
  8. REBETOL [Suspect]
     Dosage: 400 mg, qd
     Route: 048
     Dates: start: 20120324, end: 20120406
  9. REBETOL [Suspect]
     Dosage: 200 mg, qd
     Route: 048
     Dates: start: 20120407, end: 20120518
  10. REBETOL [Suspect]
     Dosage: 400 mg, qd
     Route: 048
     Dates: start: 20120519
  11. PEG-INTRON [Suspect]
     Indication: HEPATITIS C
     Dosage: 1.5 ?g/kg, UNK
     Route: 058
     Dates: start: 20120302, end: 20120302
  12. PEG-INTRON [Suspect]
     Dosage: 1.2 ?g/kg, UNK
     Route: 058
     Dates: start: 20120309
  13. PEG-INTRON [Suspect]
     Dosage: UNK
     Route: 058

REACTIONS (1)
  - Neutrophil count decreased [Not Recovered/Not Resolved]
